FAERS Safety Report 20528997 (Version 1)
Quarter: 2022Q1

REPORT INFORMATION
  Report Type: Other
  Country: JP (occurrence: None)
  Receive Date: 20220228
  Receipt Date: 20220228
  Transmission Date: 20220423
  Serious: Yes (Other)
  Sender: FDA-Public Use
  Company Number: JP-Merck Healthcare KGaA-9300753

PATIENT
  Age: 82 Year
  Sex: Male

DRUGS (4)
  1. METFORMIN HYDROCHLORIDE [Suspect]
     Active Substance: METFORMIN HYDROCHLORIDE
     Indication: Product used for unknown indication
  2. METFORMIN HYDROCHLORIDE [Suspect]
     Active Substance: METFORMIN HYDROCHLORIDE
  3. SITAGLIPTIN [Concomitant]
     Active Substance: SITAGLIPTIN
     Indication: Product used for unknown indication
  4. GLICLAZIDE [Concomitant]
     Active Substance: GLICLAZIDE
     Indication: Product used for unknown indication

REACTIONS (11)
  - Lactic acidosis [Recovering/Resolving]
  - Heat stroke [Unknown]
  - Renal impairment [Recovering/Resolving]
  - Hyperkalaemia [Unknown]
  - Renal atrophy [Unknown]
  - Cardiac dysfunction [Recovering/Resolving]
  - Hypovolaemic shock [Unknown]
  - Vitamin B1 decreased [Unknown]
  - Pleural effusion [Recovered/Resolved]
  - Myocardial ischaemia [Unknown]
  - Contraindicated product administered [Unknown]
